FAERS Safety Report 10355835 (Version 1)
Quarter: 2014Q3

REPORT INFORMATION
  Report Type: Spontaneous
  Country: IT (occurrence: IT)
  Receive Date: 20140731
  Receipt Date: 20140731
  Transmission Date: 20150326
  Serious: Yes (Other)
  Sender: FDA-Public Use
  Company Number: PHHY2014IT091230

PATIENT
  Age: 67 Year
  Sex: Female

DRUGS (2)
  1. FLOUROURACIL TEVA [Concomitant]
     Indication: COLORECTAL CANCER
     Dosage: 680 MG, UNK
     Route: 042
     Dates: start: 20140722, end: 20140722
  2. OXALIPLATIN SANDOZ [Suspect]
     Active Substance: OXALIPLATIN
     Indication: COLORECTAL CANCER
     Dosage: 145 MG, CYCLIC
     Route: 042
     Dates: start: 20140722, end: 20140722

REACTIONS (3)
  - Trismus [Recovered/Resolved]
  - Dysaesthesia pharynx [Recovered/Resolved]
  - Dysphonia [Recovered/Resolved]

NARRATIVE: CASE EVENT DATE: 20140722
